FAERS Safety Report 5160650-4 (Version None)
Quarter: 2006Q4

REPORT INFORMATION
  Report Type: 
  Country: None (occurrence: None)
  Receive Date: 20061121
  Receipt Date: 20061109
  Transmission Date: 20070319
  Serious: Yes (Other)
  Sender: FDA-Public Use
  Company Number: 2006138185

PATIENT
  Age: 75 Year
  Sex: Female

DRUGS (10)
  1. CHANTIX [Suspect]
     Dates: start: 20061001
  2. KONSYL (PSYLLIUM HYDROPHILIC MUCILLOID) [Concomitant]
  3. EFFEXOR (VENAFAXINE HYDROCHLORIDE) [Concomitant]
  4. AMBIEN [Concomitant]
  5. ZETIA [Concomitant]
  6. ALPRAZOLAM [Concomitant]
  7. MONTELUKAST (MONTELUKAST) [Concomitant]
  8. PREVACID [Concomitant]
  9. NASONEX [Concomitant]
  10. SPIRIVA [Concomitant]

REACTIONS (4)
  - HYPOTENSION [None]
  - JOINT SWELLING [None]
  - MYOCARDIAL INFARCTION [None]
  - PAIN IN EXTREMITY [None]
